FAERS Safety Report 7551503-2 (Version None)
Quarter: 2011Q2

REPORT INFORMATION
  Report Type: 
  Country: None (occurrence: None)
  Receive Date: 20110616
  Receipt Date: 20110602
  Transmission Date: 20111010
  Serious: Yes (Hospitalization, Other)
  Sender: FDA-Public Use
  Company Number: PHHY2011AU43047

PATIENT
  Sex: Male

DRUGS (5)
  1. OLANZAPINE [Concomitant]
     Dosage: 15 MG, UNK
  2. CLOZAPINE [Suspect]
     Dosage: 375 MG, UNK
  3. LITHIUM [Concomitant]
     Dosage: 1350 MG, UNK
  4. CLOZAPINE [Suspect]
     Dosage: 350 MG, UNK
     Dates: start: 20020103
  5. VALPROATE SODIUM [Concomitant]
     Dosage: 2 MG, UNK

REACTIONS (7)
  - TROPONIN INCREASED [None]
  - DYSPNOEA [None]
  - ELECTROCARDIOGRAM T WAVE AMPLITUDE DECREASED [None]
  - OBESITY [None]
  - LEFT VENTRICULAR HYPERTROPHY [None]
  - LEFT ATRIAL DILATATION [None]
  - BODY MASS INDEX INCREASED [None]
